FAERS Safety Report 5828742-1 (Version None)
Quarter: 2008Q3

REPORT INFORMATION
  Report Type: 
  Country: None (occurrence: None)
  Receive Date: 20080731
  Receipt Date: 20080723
  Transmission Date: 20090109
  Serious: Yes (Death, Hospitalization, Other)
  Sender: FDA-Public Use
  Company Number: US-ELI_LILLY_AND_COMPANY-US200807005102

PATIENT
  Sex: Male

DRUGS (2)
  1. GEMZAR [Suspect]
     Indication: PROSTATE CANCER
     Dosage: 750 MG/M2, UNK
  2. EPOTHILONE B [Concomitant]
     Indication: PROSTATE CANCER
     Dosage: 2.5 MG/M2, UNK

REACTIONS (4)
  - DYSPNOEA [None]
  - NEUTROPENIA [None]
  - PNEUMONIA [None]
  - SEPSIS [None]
